FAERS Safety Report 5918044-7 (Version None)
Quarter: 2008Q4

REPORT INFORMATION
  Report Type: 
  Country: None (occurrence: None)
  Receive Date: 20081014
  Receipt Date: 20081002
  Transmission Date: 20090506
  Serious: Yes (Disabling)
  Sender: FDA-Public Use
  Company Number: BR-PFIZER INC-2008083658

PATIENT
  Sex: Female
  Weight: 50 kg

DRUGS (2)
  1. DEPO-PROVERA SUSPENSION/INJ [Suspect]
     Indication: OFF LABEL USE
     Route: 030
     Dates: start: 20080101, end: 20080101
  2. DEPO-PROVERA SUSPENSION/INJ [Suspect]
     Indication: MENSTRUAL DISCOMFORT
     Route: 030
     Dates: start: 20080701, end: 20080701

REACTIONS (3)
  - INJECTION SITE ABSCESS [None]
  - INJECTION SITE NECROSIS [None]
  - INJECTION SITE PAIN [None]
